FAERS Safety Report 4280192-8 (Version None)
Quarter: 2004Q1

REPORT INFORMATION
  Report Type: 
  Country: None (occurrence: None)
  Receive Date: 20040128
  Receipt Date: 20040117
  Transmission Date: 20041129
  Serious: Yes (Disabling)
  Sender: FDA-Public Use
  Company Number: GB-GLAXOSMITHKLINE-B0320167A

PATIENT
  Age: 56 Year
  Sex: Male

DRUGS (1)
  1. RANITIDINE [Suspect]
     Indication: DYSPEPSIA
     Route: 048
     Dates: start: 20031101, end: 20031207

REACTIONS (1)
  - ERECTILE DYSFUNCTION [None]
